FAERS Safety Report 7203460-6 (Version None)
Quarter: 2010Q4

REPORT INFORMATION
  Report Type: 
  Country: None (occurrence: None)
  Receive Date: 20101230
  Receipt Date: 20101222
  Transmission Date: 20110411
  Serious: Yes (Hospitalization)
  Sender: FDA-Public Use
  Company Number: US-JNJFOC-20101100804

PATIENT
  Sex: Female
  Weight: 70.31 kg

DRUGS (7)
  1. DURAGESIC-50 [Suspect]
     Indication: SPINAL FUSION SURGERY
     Route: 062
  2. DURAGESIC-50 [Suspect]
     Indication: SPINAL OSTEOARTHRITIS
     Route: 062
  3. DURAGESIC-50 [Suspect]
     Indication: BACK PAIN
     Route: 062
  4. DURAGESIC-50 [Suspect]
     Route: 062
  5. DURAGESIC-50 [Suspect]
     Route: 062
  6. DURAGESIC-50 [Suspect]
     Route: 062
  7. UNKNOWN MEDICATION [Concomitant]
     Route: 065

REACTIONS (7)
  - ARTHROPATHY [None]
  - BONE LESION [None]
  - INTERVERTEBRAL DISC DEGENERATION [None]
  - INTESTINAL HAEMORRHAGE [None]
  - MYASTHENIA GRAVIS [None]
  - PRODUCT ADHESION ISSUE [None]
  - THERAPEUTIC RESPONSE DECREASED [None]
